FAERS Safety Report 24864027 (Version 1)
Quarter: 2025Q1

REPORT INFORMATION
  Report Type: Spontaneous
  Country: FR (occurrence: FR)
  Receive Date: 20250120
  Receipt Date: 20250120
  Transmission Date: 20250408
  Serious: Yes (Hospitalization, Other)
  Sender: SLATE RUN
  Company Number: FR-SLATERUN-2025SRLIT00003

PATIENT
  Age: 59 Year
  Sex: Male

DRUGS (5)
  1. DOXYCYCLINE [Suspect]
     Active Substance: DOXYCYCLINE
     Indication: Infection
     Route: 065
  2. LANDIOLOL [Concomitant]
     Active Substance: LANDIOLOL
     Indication: Ventricular arrhythmia
     Route: 042
  3. AMIODARONE [Concomitant]
     Active Substance: AMIODARONE
     Indication: Ventricular arrhythmia
     Route: 042
  4. LIDOCAINE [Concomitant]
     Active Substance: LIDOCAINE
     Indication: Ventricular arrhythmia
     Route: 042
  5. XYLOCAINE [Concomitant]
     Active Substance: LIDOCAINE HYDROCHLORIDE
     Indication: Cardiogenic shock
     Route: 065

REACTIONS (1)
  - Eosinophilic myocarditis [Recovered/Resolved]
